FAERS Safety Report 7539706-4 (Version None)
Quarter: 2011Q2

REPORT INFORMATION
  Report Type: 
  Country: None (occurrence: None)
  Receive Date: 20110610
  Receipt Date: 20110603
  Transmission Date: 20111010
  Serious: Yes (Hospitalization, Other)
  Sender: FDA-Public Use
  Company Number: SE-PFIZER INC-2011123026

PATIENT
  Age: 74 Year
  Sex: Male

DRUGS (3)
  1. AMLODIPINE BESYLATE [Suspect]
     Dosage: UNK
     Dates: end: 20110214
  2. CYMBALTA [Suspect]
     Dosage: UNK
     Dates: end: 20110214
  3. LYRICA [Suspect]
     Indication: PHANTOM PAIN
     Dosage: UNK
     Dates: end: 20110214

REACTIONS (6)
  - DIZZINESS [None]
  - VIITH NERVE PARALYSIS [None]
  - SYNCOPE [None]
  - HEADACHE [None]
  - DYSARTHRIA [None]
  - ORTHOSTATIC HYPOTENSION [None]
